FAERS Safety Report 9293588 (Version 1)
Quarter: 2013Q2

REPORT INFORMATION
  Report Type: Report from Study
  Country: CA (occurrence: CA)
  Receive Date: 20130516
  Receipt Date: 20130516
  Transmission Date: 20140414
  Serious: Yes (Other)
  Sender: FDA-Public Use
  Company Number: PHHY2013CA048891

PATIENT
  Sex: Male

DRUGS (1)
  1. ACLASTA [Suspect]
     Indication: OSTEOPOROSIS
     Dosage: UNK UKN, UNK
     Route: 042
     Dates: start: 20130301

REACTIONS (5)
  - Gastrointestinal haemorrhage [Unknown]
  - Fracture [Unknown]
  - Musculoskeletal pain [Unknown]
  - Fatigue [Unknown]
  - Pyrexia [Unknown]
